FAERS Safety Report 5514016-5 (Version None)
Quarter: 2007Q4

REPORT INFORMATION
  Report Type: 
  Country: None (occurrence: None)
  Receive Date: 20071113
  Receipt Date: 20071107
  Transmission Date: 20080405
  Serious: Yes (Hospitalization)
  Sender: FDA-Public Use
  Company Number: FR-WYE-G00573007

PATIENT
  Age: 19 Year
  Sex: Female

DRUGS (5)
  1. ADVIL LIQUI-GELS [Suspect]
     Dosage: UNSPECIFIED
     Route: 048
     Dates: start: 20070511, end: 20070626
  2. ACETAMINOPHEN [Suspect]
     Dosage: UNSPECIFIED
     Route: 048
     Dates: start: 20070619, end: 20070621
  3. PSEUDOEPHEDRINE HYDROCHLORIDE [Suspect]
     Dosage: UNSPECIFIED
     Route: 048
     Dates: start: 20070619, end: 20070621
  4. RHINADVIL [Suspect]
     Dosage: UNSPECIFIED
     Route: 048
     Dates: start: 20070619, end: 20070621
  5. SENNOSIDE A [Suspect]
     Dosage: UNSPECIFIED
     Route: 048
     Dates: start: 20070515, end: 20070615

REACTIONS (5)
  - AGRANULOCYTOSIS [None]
  - EPSTEIN-BARR VIRUS INFECTION [None]
  - GRANULOCYTES MATURATION ARREST [None]
  - PYREXIA [None]
  - STOMATITIS [None]
